FAERS Safety Report 14975898 (Version 2)
Quarter: 2018Q4

REPORT INFORMATION
  Report Type: Spontaneous
  Country: US (occurrence: US)
  Receive Date: 20180605
  Receipt Date: 20181112
  Transmission Date: 20190204
  Serious: Yes (Other)
  Sender: FDA-Public Use
  Company Number: US-BAUSCH-BL-2018-004664

PATIENT
  Age: 36 Year
  Sex: Female

DRUGS (2)
  1. SILIQ [Suspect]
     Active Substance: BRODALUMAB
     Indication: PSORIASIS
     Dosage: 210 MG ADMISISTERED INJECTION AT WEEK 0,1,2
     Route: 058
     Dates: start: 201711
  2. SILIQ [Suspect]
     Active Substance: BRODALUMAB
     Dosage: 210 MG EVERY 2 WEEKS
     Route: 058
     Dates: end: 201802

REACTIONS (1)
  - Suicidal ideation [Recovered/Resolved]

NARRATIVE: CASE EVENT DATE: 201802
